FAERS Safety Report 10109005 (Version 1)
Quarter: 2014Q2

REPORT INFORMATION
  Report Type: Spontaneous
  Country: US (occurrence: None)
  Receive Date: 20140423
  Receipt Date: 20140423
  Transmission Date: 20141212
  Serious: Yes (Hospitalization)
  Sender: FDA-Public Use
  Company Number: UCM201404-000059

PATIENT
  Age: 17 Year
  Sex: Female

DRUGS (5)
  1. LAMOTRIGINE (LAMOTRIGINE) (LAMOTRIGINE) [Suspect]
  2. ZIPRASIDONE [Suspect]
  3. OLANZAPINE [Suspect]
  4. SERTRALINE (SERTRALINE) (SERTRALINE) [Suspect]
  5. LANSOPRAZOLE (LANSOPRAZOLE) (LANSOPRAZOLE) [Suspect]

REACTIONS (3)
  - Hyperprolactinaemia [None]
  - Weight increased [None]
  - Vaginal haemorrhage [None]
